FAERS Safety Report 9531036 (Version 2)
Quarter: 2013Q3

REPORT INFORMATION
  Report Type: Report from Study
  Country: AT (occurrence: AT)
  Receive Date: 20130918
  Receipt Date: 20130918
  Transmission Date: 20140515
  Serious: Yes (Other)
  Sender: FDA-Public Use
  Company Number: AT-ACCORD-019460

PATIENT
  Age: 11 Year
  Sex: Female

DRUGS (4)
  1. ETOPOSIDE [Suspect]
     Indication: ACUTE MONOCYTIC LEUKAEMIA
  2. CYTARABINE [Suspect]
     Indication: ACUTE MONOCYTIC LEUKAEMIA
  3. MITOXANTRONE [Suspect]
     Indication: ACUTE MONOCYTIC LEUKAEMIA
  4. THIOGUANINE [Suspect]
     Indication: ACUTE MONOCYTIC LEUKAEMIA

REACTIONS (2)
  - Sepsis [Unknown]
  - Off label use [Unknown]
